FAERS Safety Report 20638126 (Version 2)
Quarter: 2022Q2

REPORT INFORMATION
  Report Type: Spontaneous
  Country: DK (occurrence: DK)
  Receive Date: 20220325
  Receipt Date: 20220423
  Transmission Date: 20220721
  Serious: Yes (Other)
  Sender: FDA-Public Use
  Company Number: None

PATIENT
  Age: 41 Year
  Sex: Male
  Weight: 75 kg

DRUGS (3)
  1. GABAPENTIN [Suspect]
     Active Substance: GABAPENTIN
     Indication: Intervertebral disc protrusion
     Dosage: STRENGTH: 300 MG, UNIT DOSE: 900 MG, FREQUENCY TIME - 1 DAY
     Route: 048
     Dates: start: 20210902, end: 20211014
  2. PINEX [Concomitant]
     Indication: Back pain
     Dates: start: 20210902
  3. IBUPROFEN ^BRIL^ [Concomitant]
     Indication: Back pain
     Dates: start: 20210902

REACTIONS (1)
  - Iridocyclitis [Not Recovered/Not Resolved]

NARRATIVE: CASE EVENT DATE: 20211001
